FAERS Safety Report 18066414 (Version 1)
Quarter: 2020Q3

REPORT INFORMATION
  Report Type: Report from Study
  Country: NL (occurrence: NL)
  Receive Date: 20200724
  Receipt Date: 20200724
  Transmission Date: 20201103
  Serious: Yes (Hospitalization)
  Sender: FDA-Public Use
  Company Number: NL-MYLANLABS-2020M1066033

PATIENT

DRUGS (5)
  1. IRINOTECAN [Suspect]
     Active Substance: IRINOTECAN
     Indication: COLORECTAL CANCER
     Dosage: DATE OF LAST DOSE OF IRINOTECAN: 03/MAY/2020
     Route: 065
     Dates: start: 20200102, end: 20200503
  2. OXALIPLATIN. [Suspect]
     Active Substance: OXALIPLATIN
     Indication: COLORECTAL CANCER
     Dosage: DATE OF LAST DOSE OF OXALIPLATIN: 05/MAY/2020
     Route: 065
     Dates: start: 20200102, end: 20200505
  3. LEUCOVORIN                         /00566701/ [Suspect]
     Active Substance: LEUCOVORIN
     Indication: COLORECTAL CANCER
     Dosage: DATE OF LAST DOSE OF LEUCOVORIN: 03/MAY/2020
     Route: 065
     Dates: start: 20200102, end: 20200503
  4. BEVACIZUMAB. [Suspect]
     Active Substance: BEVACIZUMAB
     Indication: COLORECTAL CANCER
     Dosage: DATE OF LAST DOSE OF BEVACIZUMAB: 02/JAN/2020
     Route: 065
     Dates: start: 20200102, end: 20200102
  5. FLUOROURACIL. [Suspect]
     Active Substance: FLUOROURACIL
     Indication: COLORECTAL CANCER
     Dosage: DATE OF LAST DOSE OF FLUOROURACIL: 05/MAY/2020
     Route: 065
     Dates: start: 20200102, end: 20200505

REACTIONS (2)
  - Febrile neutropenia [Unknown]
  - Pyrexia [Unknown]

NARRATIVE: CASE EVENT DATE: 20200114
